FAERS Safety Report 7527779-4 (Version None)
Quarter: 2011Q2

REPORT INFORMATION
  Report Type: 
  Country: None (occurrence: None)
  Receive Date: 20110512
  Receipt Date: 20110224
  Transmission Date: 20111010
  Serious: No
  Sender: FDA-Public Use
  Company Number: 1000018753

PATIENT
  Age: 34 Year
  Sex: Female

DRUGS (6)
  1. SAVELLA [Suspect]
     Indication: CHRONIC FATIGUE SYNDROME
     Dosage: SEE IMAGE
     Route: 048
     Dates: start: 20100101, end: 20100101
  2. SAVELLA [Suspect]
     Indication: CHRONIC FATIGUE SYNDROME
     Dosage: SEE IMAGE
     Route: 048
     Dates: start: 20101101
  3. SAVELLA [Suspect]
     Indication: CHRONIC FATIGUE SYNDROME
     Dosage: SEE IMAGE
     Route: 048
     Dates: start: 20100101, end: 20100101
  4. SAVELLA [Suspect]
     Indication: CHRONIC FATIGUE SYNDROME
     Dosage: SEE IMAGE
     Route: 048
     Dates: start: 20100101, end: 20101101
  5. SAVELLA [Suspect]
     Indication: CHRONIC FATIGUE SYNDROME
     Dosage: SEE IMAGE
     Route: 048
     Dates: start: 20100501, end: 20100501
  6. VITAMIN D (VITAMIN D) (VITAMIN D) [Concomitant]

REACTIONS (4)
  - VOMITING [None]
  - GASTRIC DISORDER [None]
  - HEADACHE [None]
  - ARTHRALGIA [None]
